FAERS Safety Report 7114949-2 (Version None)
Quarter: 2010Q4

REPORT INFORMATION
  Report Type: 
  Country: None (occurrence: None)
  Receive Date: 20101122
  Receipt Date: 20101112
  Transmission Date: 20110411
  Serious: No
  Sender: FDA-Public Use
  Company Number: US-BIOGENIDEC-2010BI040256

PATIENT
  Age: 26 Year
  Sex: Male

DRUGS (2)
  1. TYSABRI [Suspect]
     Indication: MULTIPLE SCLEROSIS
     Route: 042
     Dates: start: 20100928
  2. UNKNOWN MEDICATION [Concomitant]
     Indication: SINUS HEADACHE

REACTIONS (3)
  - NASOPHARYNGITIS [None]
  - PRURITUS [None]
  - SINUS HEADACHE [None]
